FAERS Safety Report 18629580 (Version 1)
Quarter: 2020Q4

REPORT INFORMATION
  Report Type: Spontaneous
  Country: US (occurrence: US)
  Receive Date: 20201217
  Receipt Date: 20201217
  Transmission Date: 20210114
  Serious: Yes (Hospitalization)
  Sender: FDA-Public Use
  Company Number: US-TEVA-2020-US-1859433

PATIENT
  Sex: Female

DRUGS (1)
  1. TREPROSTINIL MDV TEVA [Suspect]
     Active Substance: TREPROSTINIL
     Indication: PULMONARY ARTERIAL HYPERTENSION
     Dosage: DOSE: 73.1 NG/KG/MIN; FREQUENCY: CONTINUOUS
     Route: 042
     Dates: start: 20190724

REACTIONS (1)
  - Staphylococcal infection [Unknown]
